FAERS Safety Report 4969524-2 (Version None)
Quarter: 2006Q2

REPORT INFORMATION
  Report Type: 
  Country: None (occurrence: None)
  Receive Date: 20060406
  Receipt Date: 20060327
  Transmission Date: 20061013
  Serious: Yes (Hospitalization, Other)
  Sender: FDA-Public Use
  Company Number: 012192

PATIENT
  Age: 60 Year
  Sex: Female

DRUGS (1)
  1. PRIALT(ZICONOTIDE INTRATHECAL INFUSION) SOLUTION [Suspect]
     Indication: PAIN
     Dosage: SEE IMAGE
     Route: 037
     Dates: start: 20060301, end: 20060301

REACTIONS (3)
  - AGGRESSION [None]
  - HALLUCINATION, AUDITORY [None]
  - MOOD ALTERED [None]
